FAERS Safety Report 9109791 (Version 2)
Quarter: 2014Q3

REPORT INFORMATION
  Report Type: Report from Study
  Country: FR (occurrence: FR)
  Receive Date: 20130222
  Receipt Date: 20140925
  Transmission Date: 20150326
  Serious: Yes (Hospitalization, Other)
  Sender: FDA-Public Use
  Company Number: FR-ROCHE-1190053

PATIENT
  Age: 70 Year
  Sex: Female
  Weight: 78 kg

DRUGS (16)
  1. TOCILIZUMAB [Suspect]
     Active Substance: TOCILIZUMAB
     Dosage: 8 MG/KG
     Route: 041
     Dates: start: 20110615
  2. LAMALINE [Concomitant]
     Active Substance: ACETAMINOPHEN\CAFFEINE\OPIUM
     Route: 065
  3. TOCILIZUMAB [Suspect]
     Active Substance: TOCILIZUMAB
     Dosage: 8 MG/KG
     Route: 041
     Dates: start: 20110419
  4. TOCILIZUMAB [Suspect]
     Active Substance: TOCILIZUMAB
     Dosage: 8 MG/KG
     Route: 041
     Dates: start: 20110712
  5. SEROPLEX [Concomitant]
     Active Substance: ESCITALOPRAM OXALATE
     Route: 065
  6. LODOZ [Concomitant]
     Active Substance: BISOPROLOL FUMARATE\HYDROCHLOROTHIAZIDE
     Route: 065
  7. VASTAREL [Concomitant]
     Active Substance: TRIMETAZIDINE DIHYDROCHLORIDE
     Route: 065
  8. CRESTOR [Concomitant]
     Active Substance: ROSUVASTATIN CALCIUM
     Route: 065
  9. TOCILIZUMAB [Suspect]
     Active Substance: TOCILIZUMAB
     Route: 041
     Dates: start: 20110321
  10. CARTREX [Concomitant]
     Active Substance: ACECLOFENAC
     Route: 065
  11. ORENCIA [Concomitant]
     Active Substance: ABATACEPT
  12. TOCILIZUMAB [Suspect]
     Active Substance: TOCILIZUMAB
     Indication: RHEUMATOID ARTHRITIS
     Route: 041
     Dates: start: 20110117
  13. TOCILIZUMAB [Suspect]
     Active Substance: TOCILIZUMAB
     Dosage: 8 MG/KG
     Route: 041
     Dates: start: 20110516
  14. TOCILIZUMAB [Suspect]
     Active Substance: TOCILIZUMAB
     Route: 041
     Dates: start: 20110222
  15. INEXIUM [Concomitant]
     Active Substance: ESOMEPRAZOLE
     Route: 065
  16. MABTHERA [Concomitant]
     Active Substance: RITUXIMAB

REACTIONS (9)
  - Carotid artery stenosis [Recovered/Resolved]
  - Cholangitis sclerosing [Not Recovered/Not Resolved]
  - Cholestasis [Unknown]
  - Hepatocellular injury [Unknown]
  - Hypertension [Recovered/Resolved]
  - Hypertriglyceridaemia [Not Recovered/Not Resolved]
  - Hepatomegaly [Recovered/Resolved]
  - Renal failure [Recovered/Resolved]
  - Malaise [Recovered/Resolved]

NARRATIVE: CASE EVENT DATE: 20110321
